FAERS Safety Report 5732804-7 (Version None)
Quarter: 2008Q2

REPORT INFORMATION
  Report Type: 
  Country: None (occurrence: None)
  Receive Date: 20080507
  Receipt Date: 20080507
  Transmission Date: 20081010
  Serious: Yes (Hospitalization)
  Sender: FDA-Public Use
  Company Number: None

PATIENT
  Sex: Female
  Weight: 50 kg

DRUGS (1)
  1. ACETAMINOPHEN [Suspect]
     Indication: PAIN
     Dosage: 650MG PRN ORAL   PAST SEVERAL MONTHS
     Route: 048

REACTIONS (8)
  - ALCOHOL ABUSE [None]
  - COUGH [None]
  - DRUG LEVEL INCREASED [None]
  - HEPATITIS [None]
  - MALAISE [None]
  - PAIN [None]
  - PYREXIA [None]
  - RETCHING [None]
